FAERS Safety Report 9983220 (Version 1)
Quarter: 2014Q1

REPORT INFORMATION
  Report Type: Report from Study
  Country: US (occurrence: US)
  Receive Date: 20140307
  Receipt Date: 20140307
  Transmission Date: 20141002
  Serious: No
  Sender: FDA-Public Use
  Company Number: US-ABBVIE-13P-163-1178128-00

PATIENT
  Age: 33 Year
  Sex: Male

DRUGS (3)
  1. HUMIRA [Suspect]
     Indication: CROHN^S DISEASE
     Dates: start: 20130730
  2. UNKNOWN MEDICATION [Concomitant]
     Indication: INSOMNIA
     Dosage: ONE PILL AT BEDTIME
  3. UNKNOWN MEDICATION [Concomitant]
     Indication: RESTLESS LEGS SYNDROME
     Dosage: ONE PILL AT BEDTIME

REACTIONS (1)
  - Gastroenteritis viral [Recovered/Resolved]
